FAERS Safety Report 18347261 (Version 4)
Quarter: 2020Q4

REPORT INFORMATION
  Report Type: Other
  Country: CA (occurrence: CA)
  Receive Date: 20201005
  Receipt Date: 20201207
  Transmission Date: 20210114
  Serious: Yes (Other)
  Sender: FDA-Public Use
  Company Number: CA-ROCHE-2675304

PATIENT
  Age: 82 Year
  Sex: Male

DRUGS (22)
  1. ESBRIET [Suspect]
     Active Substance: PIRFENIDONE
     Route: 048
     Dates: start: 20200904, end: 202009
  2. ESBRIET [Suspect]
     Active Substance: PIRFENIDONE
     Route: 048
     Dates: start: 20200914
  3. CLOPIDOGREL BISULFATE. [Concomitant]
     Active Substance: CLOPIDOGREL BISULFATE
     Route: 048
  4. ESBRIET [Suspect]
     Active Substance: PIRFENIDONE
     Route: 048
     Dates: start: 202009
  5. BISOPROLOL FUMARATE. [Concomitant]
     Active Substance: BISOPROLOL FUMARATE
  6. BUDESONIDE. [Concomitant]
     Active Substance: BUDESONIDE
     Dosage: USE 1 NEBULE ONCE DAILY IN SINUS RINSE AS DIRECTED
  7. AMLODIPINE BESYLATE. [Concomitant]
     Active Substance: AMLODIPINE BESYLATE
     Route: 048
  8. ESCULIN [Concomitant]
     Active Substance: ESCULIN
  9. LEVOTHYROXINE SODIUM. [Concomitant]
     Active Substance: LEVOTHYROXINE SODIUM
  10. MYCOPHENOLATE MOFETIL. [Suspect]
     Active Substance: MYCOPHENOLATE MOFETIL
     Indication: IDIOPATHIC PULMONARY FIBROSIS
     Dosage: DISCONTINUED
     Route: 065
  11. HYDROCORTISONE. [Concomitant]
     Active Substance: HYDROCORTISONE
  12. QUINAPRIL HYDROCHLORIDE. [Concomitant]
     Active Substance: QUINAPRIL HYDROCHLORIDE
  13. ROSUVASTATIN CALCIUM. [Concomitant]
     Active Substance: ROSUVASTATIN CALCIUM
  14. METFORMIN HYDROCHLORIDE. [Concomitant]
     Active Substance: METFORMIN HYDROCHLORIDE
     Route: 048
  15. NITROGLYCERIN. [Concomitant]
     Active Substance: NITROGLYCERIN
  16. PANTOPRAZOLE MAGNESIUM [Concomitant]
     Active Substance: PANTOPRAZOLE MAGNESIUM
  17. LATANOPROST. [Concomitant]
     Active Substance: LATANOPROST
  18. PAROXETINE HYDROCHLORIDE. [Concomitant]
     Active Substance: PAROXETINE HYDROCHLORIDE
  19. ESBRIET [Suspect]
     Active Substance: PIRFENIDONE
     Indication: IDIOPATHIC PULMONARY FIBROSIS
     Dosage: ON HOLD
     Route: 048
     Dates: start: 20200826, end: 20200904
  20. ESBRIET [Suspect]
     Active Substance: PIRFENIDONE
     Indication: IDIOPATHIC PULMONARY FIBROSIS
     Route: 065
  21. GLIMEPIRIDE. [Concomitant]
     Active Substance: GLIMEPIRIDE
     Route: 048
  22. CINCHOCAINE [Concomitant]
     Active Substance: DIBUCAINE

REACTIONS (8)
  - Blood urine present [Not Recovered/Not Resolved]
  - Abdominal pain upper [Unknown]
  - Paranasal sinus hypersecretion [Unknown]
  - Abdominal pain upper [Recovering/Resolving]
  - Cough [Unknown]
  - Productive cough [Unknown]
  - Lung disorder [Unknown]
  - Chromaturia [Unknown]

NARRATIVE: CASE EVENT DATE: 20200902
